FAERS Safety Report 5030936-2 (Version None)
Quarter: 2006Q2

REPORT INFORMATION
  Report Type: 
  Country: None (occurrence: None)
  Receive Date: 20060619
  Receipt Date: 20060607
  Transmission Date: 20061013
  Serious: Yes (Death, Hospitalization)
  Sender: FDA-Public Use
  Company Number: 2005-01147

PATIENT
  Age: 62 Year
  Sex: Female

DRUGS (3)
  1. VELCADE [Suspect]
     Indication: MULTIPLE MYELOMA
     Dosage: 1.30 MG/M2, IV BOLUS
     Route: 040
     Dates: start: 20050415, end: 20050503
  2. METOCLOPRAMIDE [Concomitant]
  3. CYCLIZINE (CYCLIZINE) [Concomitant]

REACTIONS (4)
  - CARDIAC FAILURE CONGESTIVE [None]
  - GENERAL PHYSICAL HEALTH DETERIORATION [None]
  - RENAL FAILURE ACUTE [None]
  - SQUAMOUS CELL CARCINOMA [None]
